FAERS Safety Report 26074977 (Version 1)
Quarter: 2025Q4

REPORT INFORMATION
  Report Type: Spontaneous
  Country: US (occurrence: None)
  Receive Date: 20251120
  Receipt Date: 20251120
  Transmission Date: 20260118
  Serious: Yes (Disabling)
  Sender: FDA-CTU
  Company Number: None

PATIENT
  Age: 30 Year
  Sex: Male
  Weight: 56.25 kg

DRUGS (5)
  1. LEVOFLOXACIN [Suspect]
     Active Substance: LEVOFLOXACIN
     Indication: Prostatic abscess
     Dosage: OTHER QUANTITY : 1 TABLET(S);?FREQUENCY : DAILY;?
     Route: 048
     Dates: start: 20250508, end: 20250703
  2. VITAMIN D [Concomitant]
     Active Substance: VITAMIN D NOS
  3. COENZYME Q10 [Concomitant]
     Active Substance: DIETARY SUPPLEMENT\UBIDECARENONE
  4. ALA [Concomitant]
  5. MAGNESIUM [Concomitant]
     Active Substance: MAGNESIUM

REACTIONS (7)
  - Peripheral swelling [None]
  - Gait disturbance [None]
  - Arthropathy [None]
  - Tendon discomfort [None]
  - Feeling cold [None]
  - Tendonitis [None]
  - Quality of life decreased [None]

NARRATIVE: CASE EVENT DATE: 20250630
